FAERS Safety Report 10083182 (Version 2)
Quarter: 2014Q3

REPORT INFORMATION
  Report Type: Spontaneous
  Country: DE (occurrence: DE)
  Receive Date: 20140417
  Receipt Date: 20140722
  Transmission Date: 20150326
  Serious: Yes (Life-Threatening, Hospitalization, Other)
  Sender: FDA-Public Use
  Company Number: DE-UCBSA-117830

PATIENT
  Age: 37 Year
  Sex: Male
  Weight: 61 kg

DRUGS (12)
  1. ACC [Concomitant]
     Active Substance: ACETYLCYSTEINE
     Dosage: 600MG
  2. L-THYROXIN [Concomitant]
     Active Substance: LEVOTHYROXINE SODIUM
     Indication: HYPOTHYROIDISM
     Dosage: 100 ?G, ONCE DAILY (QD)
     Route: 048
  3. VALIUM [Concomitant]
     Active Substance: DIAZEPAM
     Indication: CONVULSION
     Dosage: 10 MG, AS NEEDED (PRN)
     Route: 054
     Dates: start: 20131210, end: 20131210
  4. LAMOTRIGINE. [Concomitant]
     Active Substance: LAMOTRIGINE
     Dosage: 250-0-250
  5. FRISIUM [Concomitant]
     Active Substance: CLOBAZAM
     Indication: CONVULSION
     Dosage: 10 MG, 2X/DAY (BID)
     Route: 048
     Dates: start: 20131208, end: 20140106
  6. CLOPAZAN [Concomitant]
     Dosage: 10-0-10
  7. LEVETIRACETAM. [Concomitant]
     Active Substance: LEVETIRACETAM
     Indication: CONVULSION
     Dosage: 1000-0-1000
     Route: 048
  8. AMPICILLIN AND SULBACTAM [Concomitant]
     Active Substance: AMPICILLIN SODIUM\SULBACTAM SODIUM
     Indication: PNEUMONIA
     Dosage: 2000/1000 3 TIMES DAILY
     Route: 042
     Dates: start: 20131210, end: 20131217
  9. LAMICTAL [Concomitant]
     Active Substance: LAMOTRIGINE
     Indication: CONVULSION
     Dosage: 250 MG, 2X/DAY (BID)
     Route: 048
  10. VIGANTOLETTEN [Concomitant]
     Active Substance: CHOLECALCIFEROL
     Indication: VITAMIN D DEFICIENCY
     Dosage: 1000 IU, ONCE DAILY (QD)
  11. VIMPAT [Suspect]
     Active Substance: LACOSAMIDE
     Indication: STATUS EPILEPTICUS
     Dosage: 20-40 MG ONCE DAILY (10 MG/ML)
     Route: 042
     Dates: start: 20131210, end: 20131210
  12. LEVETIRACETAM. [Concomitant]
     Active Substance: LEVETIRACETAM
     Dosage: 500MG (1-0-2)
     Route: 048

REACTIONS (2)
  - Blood pressure decreased [Recovered/Resolved]
  - Septic shock [Unknown]

NARRATIVE: CASE EVENT DATE: 20131210
